FAERS Safety Report 6581094-4 (Version None)
Quarter: 2010Q1

REPORT INFORMATION
  Report Type: 
  Country: None (occurrence: None)
  Receive Date: 20100215
  Receipt Date: 20100204
  Transmission Date: 20100710
  Serious: Yes (Hospitalization, Other)
  Sender: FDA-Public Use
  Company Number: PHEH2008US06108

PATIENT
  Sex: Female

DRUGS (10)
  1. ESTRADERM [Suspect]
     Indication: HORMONE REPLACEMENT THERAPY
     Dosage: UNK
     Route: 062
     Dates: start: 19940608, end: 19970109
  2. PROVERA [Suspect]
     Indication: HORMONE REPLACEMENT THERAPY
     Dosage: UNK
     Dates: start: 19930128, end: 19970109
  3. PREMPRO [Suspect]
     Indication: HORMONE REPLACEMENT THERAPY
     Dosage: UNK
     Dates: start: 19970109, end: 20020819
  4. EFFEXOR [Concomitant]
  5. COUMADIN [Concomitant]
  6. KEFLEX [Concomitant]
  7. DECADRON                                /CAN/ [Concomitant]
  8. COLACE [Concomitant]
  9. PAXIL [Concomitant]
     Dosage: UNK
  10. ATIVAN [Concomitant]
     Dosage: UNK

REACTIONS (12)
  - ANXIETY [None]
  - BIOPSY BREAST [None]
  - BREAST CANCER [None]
  - BREAST RECONSTRUCTION [None]
  - CENTRAL VENOUS CATHETERISATION [None]
  - FEAR OF DISEASE [None]
  - FEELING ABNORMAL [None]
  - MASTECTOMY [None]
  - METASTASES TO LYMPH NODES [None]
  - PAIN [None]
  - PSYCHIATRIC SYMPTOM [None]
  - SCAR [None]
